FAERS Safety Report 24661278 (Version 2)
Quarter: 2025Q1

REPORT INFORMATION
  Report Type: Spontaneous
  Country: US (occurrence: US)
  Receive Date: 20241125
  Receipt Date: 20250227
  Transmission Date: 20250409
  Serious: No
  Sender: AVADEL CNS PHARMACEUTICALS, LLC
  Company Number: US-AVADEL CNS PHARMACEUTICALS, LLC-2024AVA01422

PATIENT
  Age: 35 Year
  Sex: Male
  Weight: 79.365 kg

DRUGS (16)
  1. LUMRYZ [Suspect]
     Active Substance: SODIUM OXYBATE
     Indication: Narcolepsy
     Dosage: 7.5 G, ONCE NIGHTLY
     Route: 048
     Dates: start: 20240712
  2. LUMRYZ [Suspect]
     Active Substance: SODIUM OXYBATE
     Indication: Cataplexy
  3. FINASTERIDE [Concomitant]
     Active Substance: FINASTERIDE
     Dosage: 1 MG, ONCE DAILY
  4. EPIPEN [Concomitant]
     Active Substance: EPINEPHRINE
  5. TESTOSTERONE CYPIONATE [Concomitant]
     Active Substance: TESTOSTERONE CYPIONATE
     Dosage: 30 MG/ML ONCE A WEEK
  6. FISH OIL [Concomitant]
     Active Substance: FISH OIL
     Dosage: 2000 MG DOSE (180 MG) ONCE A DAY
  7. VITAMIN D3 [Concomitant]
     Active Substance: CHOLECALCIFEROL
     Dosage: 5000 ONCE A DAY
  8. HOMOCYSTEINE SUPREME [Concomitant]
     Dosage: 1 CAPSULES, ONCE DAILY
  9. COENZYME Q10 [Concomitant]
     Active Substance: DIETARY SUPPLEMENT\UBIDECARENONE
     Dosage: 100 MG, ONCE A DAY
  10. XYZAL [Concomitant]
     Active Substance: LEVOCETIRIZINE DIHYDROCHLORIDE
     Dosage: 5 MG, ONCE A DAY
  11. XOPENEX [Concomitant]
     Active Substance: LEVALBUTEROL HYDROCHLORIDE
  12. CROMOLYN SODIUM [Concomitant]
     Active Substance: CROMOLYN SODIUM
  13. PEPCID [Concomitant]
     Active Substance: FAMOTIDINE
     Dosage: 40 MG MIDDAY
  14. PEPCID [Concomitant]
     Active Substance: FAMOTIDINE
     Dosage: 20 MG AT NIGHT
  15. MESALAMINE [Concomitant]
     Active Substance: MESALAMINE
     Dosage: 1000 MG, NIGHTLY
  16. NAPHAZOLINE HYDROCHLORIDE [Concomitant]
     Active Substance: NAPHAZOLINE HYDROCHLORIDE

REACTIONS (2)
  - Insomnia [Not Recovered/Not Resolved]
  - Vertigo [Not Recovered/Not Resolved]

NARRATIVE: CASE EVENT DATE: 20240701
